FAERS Safety Report 8806221 (Version 1)
Quarter: 2012Q4

REPORT INFORMATION
  Report Type: 
  Country: MX (occurrence: MX)
  Receive Date: 20120925
  Receipt Date: 20120925
  Transmission Date: 20130627
  Serious: Yes (Other)
  Sender: FDA-Public Use
  Company Number: PHHO2006MX04592

PATIENT
  Age: 34 Year
  Sex: Male

DRUGS (2)
  1. TRILEPTAL [Suspect]
     Indication: EPILEPSY
     Dosage: 1 DF, every 8 hours
     Route: 048
     Dates: start: 200506
  2. EPIVAL [Concomitant]

REACTIONS (1)
  - Convulsion [Not Recovered/Not Resolved]
